FAERS Safety Report 6395662-6 (Version None)
Quarter: 2009Q4

REPORT INFORMATION
  Report Type: 
  Country: None (occurrence: None)
  Receive Date: 20091009
  Receipt Date: 20091006
  Transmission Date: 20100525
  Serious: Yes (Death, Hospitalization)
  Sender: FDA-Public Use
  Company Number: DE-AVENTIS-200912378DE

PATIENT
  Age: 58 Year
  Sex: Male

DRUGS (4)
  1. TAXOTERE [Suspect]
     Indication: BRONCHIAL CARCINOMA
     Route: 042
     Dates: start: 20090827, end: 20090903
  2. DEXAMETHASONE TAB [Concomitant]
     Indication: DRUG USE FOR UNKNOWN INDICATION
     Route: 042
     Dates: start: 20090903, end: 20090903
  3. ONDANSETRON [Concomitant]
     Indication: ANTIEMETIC SUPPORTIVE CARE
     Dosage: DOSE: IV AND PO
     Dates: start: 20090903, end: 20090903
  4. VERGENTAN [Concomitant]
     Indication: ANTIEMETIC SUPPORTIVE CARE
     Dosage: DOSE: 1-3
     Route: 048
     Dates: start: 20090827

REACTIONS (5)
  - DEATH [None]
  - DEHYDRATION [None]
  - FATIGUE [None]
  - SKIN DISORDER [None]
  - SOMNOLENCE [None]
